FAERS Safety Report 5014930-3 (Version None)
Quarter: 2006Q2

REPORT INFORMATION
  Report Type: 
  Country: None (occurrence: None)
  Receive Date: 20060414
  Receipt Date: 20051215
  Transmission Date: 20061013
  Serious: No
  Sender: FDA-Public Use
  Company Number: 2005SP003252

PATIENT
  Age: 39 Year
  Sex: Female
  Weight: 124.7392 kg

DRUGS (3)
  1. LUNESTA [Suspect]
     Indication: INSOMNIA
     Dosage: ORAL
     Route: 048
     Dates: start: 20050901
  2. PREVACID [Concomitant]
  3. LEXAPRO [Concomitant]

REACTIONS (1)
  - DYSGEUSIA [None]
